FAERS Safety Report 8884621 (Version 2)
Quarter: 2014Q2

REPORT INFORMATION
  Report Type: Spontaneous
  Country: US (occurrence: US)
  Receive Date: 20121102
  Receipt Date: 20130805
  Transmission Date: 20141212
  Serious: Yes (Other)
  Sender: FDA-Public Use
  Company Number: US-BAYER-2012-111939

PATIENT
  Sex: Female

DRUGS (5)
  1. BAYER GENUINE ASPIRIN ORIGINAL STRENGTH [Suspect]
  2. ADVIL [Suspect]
  3. EFFEXOR XR [Suspect]
     Indication: ANXIETY
  4. CELEBREX [Suspect]
  5. ULTRAM [Suspect]

REACTIONS (5)
  - Gastrointestinal ulcer haemorrhage [None]
  - Diabetes mellitus [None]
  - Osteopenia [None]
  - Osteoporosis [None]
  - Drug interaction [None]
